FAERS Safety Report 22388487 (Version 1)
Quarter: 2023Q2

REPORT INFORMATION
  Report Type: Spontaneous
  Country: US (occurrence: None)
  Receive Date: 20230529
  Receipt Date: 20230529
  Transmission Date: 20230721
  Serious: Yes (Disabling)
  Sender: FDA-Public Use
  Company Number: None

PATIENT
  Age: 28 Year
  Sex: Female
  Weight: 56.25 kg

DRUGS (7)
  1. REMERON [Suspect]
     Active Substance: MIRTAZAPINE
     Indication: Depression
     Dosage: OTHER QUANTITY : 1 TABLET(S);?FREQUENCY : AT BEDTIME;?
     Route: 048
     Dates: start: 20200401, end: 20201101
  2. REMERON [Suspect]
     Active Substance: MIRTAZAPINE
     Indication: Insomnia
  3. ATENOLOL [Concomitant]
     Active Substance: ATENOLOL
  4. VITAMIN D [Concomitant]
     Active Substance: VITAMIN D NOS
  5. Vitamin B12 [Concomitant]
  6. FISH OIL [Concomitant]
  7. MIRTAZAPINE [Concomitant]

REACTIONS (4)
  - Panic attack [None]
  - Suicidal ideation [None]
  - Nausea [None]
  - Weight decreased [None]

NARRATIVE: CASE EVENT DATE: 20201101
